FAERS Safety Report 18301739 (Version 2)
Quarter: 2020Q4

REPORT INFORMATION
  Report Type: Spontaneous
  Country: DE (occurrence: DE)
  Receive Date: 20200923
  Receipt Date: 20201004
  Transmission Date: 20210113
  Serious: No
  Sender: FDA-Public Use
  Company Number: NVSC2020DE253619

PATIENT
  Age: 44 Year
  Sex: Female

DRUGS (1)
  1. GILENYA [Suspect]
     Active Substance: FINGOLIMOD HYDROCHLORIDE
     Indication: MULTIPLE SCLEROSIS
     Dosage: UNK
     Route: 065

REACTIONS (2)
  - Cervicobrachial syndrome [Recovered/Resolved]
  - Spinal cord disorder [Recovered/Resolved]

NARRATIVE: CASE EVENT DATE: 20141206
